FAERS Safety Report 20097132 (Version 1)
Quarter: 2021Q4

REPORT INFORMATION
  Report Type: Spontaneous
  Country: US (occurrence: None)
  Receive Date: 20211120
  Receipt Date: 20211120
  Transmission Date: 20220304
  Serious: No
  Sender: FDA-Public Use
  Company Number: None

PATIENT
  Sex: Male

DRUGS (1)
  1. ODOR EATERS [Suspect]
     Active Substance: TOLNAFTATE
     Indication: Skin odour abnormal
     Dosage: FREQUENCY : DAILY;?OTHER ROUTE : SPRAY INTO SHOES, SHOES ONTO FOOT;?
     Route: 050

REACTIONS (4)
  - Recalled product administered [None]
  - Product quality issue [None]
  - Feeling abnormal [None]
  - Malaise [None]
